FAERS Safety Report 25449086 (Version 2)
Quarter: 2025Q3

REPORT INFORMATION
  Report Type: Spontaneous
  Country: EU (occurrence: EU)
  Receive Date: 20250618
  Receipt Date: 20250816
  Transmission Date: 20251021
  Serious: Yes (Disabling)
  Sender: CELLTRION
  Company Number: EU-CELLTRION INC.-2025DE018834

PATIENT

DRUGS (6)
  1. ADALIMUMAB [Suspect]
     Active Substance: ADALIMUMAB
     Indication: Chronic recurrent multifocal osteomyelitis
     Dosage: 40 MG, EVERY 2 WEEKS
     Route: 058
     Dates: end: 202205
  2. ADALIMUMAB [Suspect]
     Active Substance: ADALIMUMAB
     Indication: Acne conglobata
     Dosage: 40 MILLIGRAM, Q2WK
     Route: 065
     Dates: start: 201903, end: 202205
  3. ADALIMUMAB [Suspect]
     Active Substance: ADALIMUMAB
     Indication: Chronic recurrent multifocal osteomyelitis
  4. NAPROXEN [Concomitant]
     Active Substance: NAPROXEN
     Indication: Back pain
     Route: 065
     Dates: start: 201811
  5. ISOTRETINOIN [Concomitant]
     Active Substance: ISOTRETINOIN
     Indication: Acne conglobata
     Route: 048
     Dates: start: 2018
  6. SULFASALAZINE [Concomitant]
     Active Substance: SULFASALAZINE
     Indication: Acne conglobata
     Route: 065
     Dates: start: 2018, end: 201903

REACTIONS (5)
  - Paradoxical psoriasis [Recovered/Resolved]
  - Psoriasis [Recovered/Resolved]
  - Sacral pain [Unknown]
  - Off label use [Unknown]
  - Drug effective for unapproved indication [Unknown]

NARRATIVE: CASE EVENT DATE: 20190101
